FAERS Safety Report 5503196-3 (Version None)
Quarter: 2007Q4

REPORT INFORMATION
  Report Type: 
  Country: None (occurrence: None)
  Receive Date: 20071031
  Receipt Date: 20071023
  Transmission Date: 20080405
  Serious: Yes (Disabling)
  Sender: FDA-Public Use
  Company Number: GB-AMGEN-US250112

PATIENT
  Sex: Female
  Weight: 90 kg

DRUGS (7)
  1. ENBREL [Suspect]
     Indication: RHEUMATOID ARTHRITIS
     Route: 058
     Dates: start: 20040826, end: 20070611
  2. CELECOXIB [Concomitant]
     Dosage: UNKNOWN
  3. THYROXINE I 125 [Concomitant]
     Dosage: UNKNOWN
  4. FELODIPINE [Concomitant]
     Dosage: UNKNOWN
  5. QUININE SULFATE [Concomitant]
     Dosage: UNKNOWN
  6. AMITRIPTYLINE HCL [Concomitant]
     Dosage: UNKNOWN
  7. BENDROFLUAZIDE [Concomitant]
     Dosage: UNKNOWN

REACTIONS (2)
  - IRITIS [None]
  - UVEITIS [None]
